FAERS Safety Report 25009132 (Version 7)
Quarter: 2025Q3

REPORT INFORMATION
  Report Type: Spontaneous
  Country: US (occurrence: US)
  Receive Date: 20250225
  Receipt Date: 20250903
  Transmission Date: 20251021
  Serious: Yes (Other)
  Sender: PFIZER
  Company Number: US-PFIZER INC-PV202400099344

PATIENT
  Age: 46 Year
  Sex: Female

DRUGS (3)
  1. TUKYSA [Suspect]
     Active Substance: TUCATINIB
     Indication: Brain oedema
     Dosage: 150MG, TWO TABLETS TWICE A DAY
  2. TUKYSA [Suspect]
     Active Substance: TUCATINIB
     Dosage: 300 MG, DAILY
  3. TUKYSA [Suspect]
     Active Substance: TUCATINIB
     Dosage: 150MG; 2 TABLETS TWICE DAILY

REACTIONS (13)
  - Cerebral disorder [Unknown]
  - Memory impairment [Unknown]
  - Noninfective encephalitis [Unknown]
  - Dysphagia [Unknown]
  - Fungal infection [Unknown]
  - Hyperchlorhydria [Unknown]
  - Skin fissures [Unknown]
  - Pain in extremity [Unknown]
  - Skin exfoliation [Unknown]
  - Skin burning sensation [Unknown]
  - Memory impairment [Unknown]
  - Off label use [Unknown]
  - Wrong technique in product usage process [Unknown]
